FAERS Safety Report 24908176 (Version 3)
Quarter: 2025Q1

REPORT INFORMATION
  Report Type: Spontaneous
  Country: US (occurrence: US)
  Receive Date: 20250131
  Receipt Date: 20250321
  Transmission Date: 20250408
  Serious: Yes (Hospitalization, Other)
  Sender: BRISTOL-MYERS SQUIBB COMPANY
  Company Number: US-BRISTOL-MYERS SQUIBB COMPANY-2025-012386

PATIENT
  Age: 80 Year
  Sex: Female

DRUGS (2)
  1. POMALYST [Suspect]
     Active Substance: POMALIDOMIDE
     Indication: Plasma cell myeloma
     Dosage: TAKE 1 CAPSULE BY MOUTH EVERY DAY ON AN EMPTY STOMACH FOR 21 DAYS ON THEN 7 DAYS OFF THEN REPEAT CYC
     Route: 048
  2. GLIPIZIDE [Concomitant]
     Active Substance: GLIPIZIDE
     Indication: Blood glucose

REACTIONS (9)
  - Diverticulitis [Unknown]
  - Neuropathy peripheral [Unknown]
  - Gout [Unknown]
  - Post procedural haemorrhage [Unknown]
  - Blood glucose abnormal [Unknown]
  - Blood pressure abnormal [Unknown]
  - Conduction disorder [Unknown]
  - Abdominal discomfort [Recovering/Resolving]
  - Pain [Recovering/Resolving]
